FAERS Safety Report 5924907-9 (Version None)
Quarter: 2008Q4

REPORT INFORMATION
  Report Type: 
  Country: None (occurrence: None)
  Receive Date: 20081017
  Receipt Date: 20081017
  Transmission Date: 20090506
  Serious: Yes (Other)
  Sender: FDA-Public Use
  Company Number: None

PATIENT
  Age: 32 Year
  Sex: Female
  Weight: 41.9577 kg

DRUGS (2)
  1. ZEGERID [Suspect]
     Indication: BARRETT'S OESOPHAGUS
     Dosage: 40MG DAILY PO
     Route: 048
     Dates: start: 20081003, end: 20081006
  2. ZEGERID [Suspect]
     Indication: GASTROOESOPHAGEAL REFLUX DISEASE
     Dosage: 40MG DAILY PO
     Route: 048
     Dates: start: 20081003, end: 20081006

REACTIONS (5)
  - ASTHENIA [None]
  - DIZZINESS [None]
  - HEADACHE [None]
  - JOINT SWELLING [None]
  - NAUSEA [None]
